FAERS Safety Report 6495122-8 (Version None)
Quarter: 2009Q4

REPORT INFORMATION
  Report Type: 
  Country: None (occurrence: None)
  Receive Date: 20091214
  Receipt Date: 20090501
  Transmission Date: 20100525
  Serious: No
  Sender: FDA-Public Use
  Company Number: US-BRISTOL-MYERS SQUIBB COMPANY-14610984

PATIENT
  Age: 40 Year
  Sex: Female

DRUGS (4)
  1. ABILIFY [Suspect]
     Indication: GENERALISED ANXIETY DISORDER
     Dosage: STARTED WITH 2.5MG, THEN INCREASED TO 5MG, THEN 7.5 MG
  2. ABILIFY [Suspect]
     Indication: DEPRESSION
     Dosage: STARTED WITH 2.5MG, THEN INCREASED TO 5MG, THEN 7.5 MG
  3. LEXAPRO [Concomitant]
  4. ZYPREXA [Concomitant]
     Dosage: INITIAL DOSE:7.5 MG  DECREASED TO 2 MG

REACTIONS (4)
  - AKATHISIA [None]
  - HYPOAESTHESIA [None]
  - PSYCHOMOTOR HYPERACTIVITY [None]
  - RESTLESSNESS [None]
